FAERS Safety Report 5829317-0 (Version None)
Quarter: 2008Q3

REPORT INFORMATION
  Report Type: 
  Country: None (occurrence: None)
  Receive Date: 20080731
  Receipt Date: 20080709
  Transmission Date: 20090109
  Serious: No
  Sender: FDA-Public Use
  Company Number: US-BOEHRINGER INGELHEIM GMBH, GERMANY-2008-BP-10711BP

PATIENT
  Age: 67 Year
  Sex: Female

DRUGS (5)
  1. MIRAPEX [Suspect]
     Indication: PARKINSON'S DISEASE
     Route: 048
     Dates: start: 20080301
  2. MIRAPEX [Suspect]
     Route: 048
     Dates: start: 20060101, end: 20080301
  3. SINEMET [Concomitant]
     Indication: PARKINSON'S DISEASE
     Dates: start: 20050101
  4. AMANTADINE HCL [Concomitant]
     Indication: PARKINSON'S DISEASE
     Dates: start: 20040101
  5. HORMONE REPLACEMENT [Concomitant]
     Indication: HORMONE REPLACEMENT THERAPY

REACTIONS (2)
  - ABDOMINAL DISTENSION [None]
  - FLATULENCE [None]
